FAERS Safety Report 4292572-5 (Version None)
Quarter: 2004Q1

REPORT INFORMATION
  Report Type: 
  Country: None (occurrence: None)
  Receive Date: 20040211
  Receipt Date: 20040211
  Transmission Date: 20041129
  Serious: Yes (Other)
  Sender: FDA-Public Use
  Company Number: None

PATIENT

DRUGS (1)
  1. MORPHINE SULFATE [Suspect]
     Indication: POST PROCEDURAL PAIN
     Dosage: 1-2 MG EVERY 5-10 IV
     Route: 042
     Dates: start: 20040101, end: 20040206

REACTIONS (1)
  - DRUG INEFFECTIVE [None]
